FAERS Safety Report 7208801-1 (Version None)
Quarter: 2011Q1

REPORT INFORMATION
  Report Type: 
  Country: None (occurrence: None)
  Receive Date: 20110104
  Receipt Date: 20101230
  Transmission Date: 20110831
  Serious: Yes (Death)
  Sender: FDA-Public Use
  Company Number: US-BRACCO-005729

PATIENT
  Sex: Male
  Weight: 86 kg

DRUGS (4)
  1. ANALGESICS [Concomitant]
     Dates: start: 20101215, end: 20101215
  2. MULTIHANCE [Suspect]
     Indication: AORTIC DISSECTION
     Route: 040
     Dates: start: 20101215, end: 20101215
  3. MULTIHANCE [Suspect]
     Indication: NUCLEAR MAGNETIC RESONANCE IMAGING
     Route: 040
     Dates: start: 20101215, end: 20101215
  4. MULTIHANCE [Suspect]
     Indication: ANGIOGRAM
     Route: 040
     Dates: start: 20101215, end: 20101215

REACTIONS (5)
  - URTICARIA [None]
  - PRODUCT COLOUR ISSUE [None]
  - RESPIRATORY DISTRESS [None]
  - CARDIAC ARREST [None]
  - ACUTE PULMONARY OEDEMA [None]
